FAERS Safety Report 9909703 (Version 1)
Quarter: 2014Q1

REPORT INFORMATION
  Report Type: Spontaneous
  Country: US (occurrence: US)
  Receive Date: 20140219
  Receipt Date: 20140219
  Transmission Date: 20141002
  Serious: No
  Sender: FDA-Public Use
  Company Number: US-PFIZER INC-2014043199

PATIENT
  Age: 6 Year
  Sex: Female
  Weight: 28.12 kg

DRUGS (2)
  1. CHILDRENS ADVIL [Suspect]
     Indication: PYREXIA
     Dosage: TWO TEASPOONFULS, EVERY 8 HOURS
     Dates: start: 20140210, end: 20140211
  2. ALBUTEROL [Concomitant]
     Indication: ASTHMA
     Dosage: 90MCG, TWO TIMES A DAY

REACTIONS (1)
  - Hallucination [Recovered/Resolved]
